FAERS Safety Report 9584072 (Version 2)
Quarter: 2013Q4

REPORT INFORMATION
  Report Type: Spontaneous
  Country: US (occurrence: US)
  Receive Date: 20131002
  Receipt Date: 20131002
  Transmission Date: 20140711
  Serious: No
  Sender: FDA-Public Use
  Company Number: US-AMGEN-USASP2013045086

PATIENT
  Age: 44 Year
  Sex: Male
  Weight: 92.97 kg

DRUGS (3)
  1. ENBREL [Suspect]
     Indication: PSORIASIS
     Dosage: 50 MG, 2 X A WEEK
     Route: 058
  2. CLARITIN                           /00917501/ [Concomitant]
     Dosage: 10 MG, QD
  3. HYDROCODONE/IBUPROFEN [Concomitant]
     Dosage: UNK

REACTIONS (2)
  - Drug effect decreased [Recovering/Resolving]
  - Psoriasis [Unknown]
